FAERS Safety Report 15260685 (Version 7)
Quarter: 2021Q3

REPORT INFORMATION
  Report Type: Report from Study
  Country: CA (occurrence: CA)
  Receive Date: 20180809
  Receipt Date: 20210906
  Transmission Date: 20211014
  Serious: Yes (Hospitalization, Other)
  Sender: FDA-Public Use
  Company Number: PHHY2018CA050673

PATIENT
  Age: 62 Year
  Sex: Female

DRUGS (9)
  1. POTASSIUM CHLORIDE. [Concomitant]
     Active Substance: POTASSIUM CHLORIDE
     Indication: PRODUCT USED FOR UNKNOWN INDICATION
     Dosage: 20 UNK, TID
     Route: 048
  2. APO?PAROXETINE [Concomitant]
     Active Substance: PAROXETINE
     Indication: PRODUCT USED FOR UNKNOWN INDICATION
     Dosage: UNK
     Route: 065
  3. SANDOSTATIN LAR DEPOT [Suspect]
     Active Substance: OCTREOTIDE ACETATE
     Indication: GASTRINOMA
     Dosage: 30 MG, QMO (EVERY 4 WEEKS)
     Route: 030
     Dates: start: 20110815
  4. SANDOSTATIN LAR DEPOT [Suspect]
     Active Substance: OCTREOTIDE ACETATE
  5. SANDOSTATIN LAR DEPOT [Suspect]
     Active Substance: OCTREOTIDE ACETATE
  6. VENOFER [Concomitant]
     Active Substance: IRON SUCROSE
     Indication: PRODUCT USED FOR UNKNOWN INDICATION
     Dosage: 1 DF
     Route: 042
     Dates: start: 20210112, end: 20210112
  7. TEVA LACTULOSE [Concomitant]
     Active Substance: LACTULOSE
     Indication: PRODUCT USED FOR UNKNOWN INDICATION
     Dosage: 1 UNK, PRN
     Route: 048
  8. PANTOLOC [Concomitant]
     Active Substance: PANTOPRAZOLE SODIUM
     Indication: PRODUCT USED FOR UNKNOWN INDICATION
     Dosage: 1 DF, OT
     Route: 048
  9. LOVENOX [Concomitant]
     Active Substance: ENOXAPARIN SODIUM
     Indication: PRODUCT USED FOR UNKNOWN INDICATION
     Dosage: 1 DF, QD
     Route: 058

REACTIONS (29)
  - Constipation [Recovered/Resolved]
  - Nephrolithiasis [Unknown]
  - Blood pressure increased [Unknown]
  - Influenza [Recovered/Resolved]
  - Chest discomfort [Unknown]
  - Dehydration [Unknown]
  - Food poisoning [Unknown]
  - Ligament sprain [Unknown]
  - Contusion [Unknown]
  - Dyspnoea [Unknown]
  - Oral mucosal eruption [Unknown]
  - Nausea [Unknown]
  - Fall [Unknown]
  - Vomiting [Unknown]
  - Sinus congestion [Recovering/Resolving]
  - Anxiety [Recovered/Resolved]
  - Ill-defined disorder [Unknown]
  - Blood pressure systolic increased [Unknown]
  - Hypersensitivity [Unknown]
  - Rash pruritic [Unknown]
  - Diarrhoea [Unknown]
  - Diabetes mellitus [Unknown]
  - Illness [Not Recovered/Not Resolved]
  - Malaise [Recovered/Resolved]
  - Mouth swelling [Unknown]
  - Influenza [Unknown]
  - Chills [Unknown]
  - Pain [Recovering/Resolving]
  - Pyrexia [Unknown]

NARRATIVE: CASE EVENT DATE: 20180305
